FAERS Safety Report 6539050-8 (Version None)
Quarter: 2010Q1

REPORT INFORMATION
  Report Type: 
  Country: None (occurrence: None)
  Receive Date: 20100115
  Receipt Date: 20100105
  Transmission Date: 20100710
  Serious: Yes (Other)
  Sender: FDA-Public Use
  Company Number: PHHY2010CH01580

PATIENT
  Sex: Male

DRUGS (5)
  1. S-OIV FOCETRIA (NVD) [Suspect]
     Indication: IMMUNISATION
  2. SANDIMMUNE [Suspect]
     Dosage: 50 MG, 2 PER DAY
  3. PREDNISONE [Suspect]
     Dosage: 5 MG, UNK
  4. AZATHIOPRINE [Suspect]
     Dosage: 5 MG, 1 PER DAY
  5. TAMIFLU [Suspect]
     Dosage: UNK
     Dates: start: 20091214, end: 20091218

REACTIONS (1)
  - VACCINATION FAILURE [None]
